FAERS Safety Report 7602985-9 (Version None)
Quarter: 2011Q3

REPORT INFORMATION
  Report Type: 
  Country: None (occurrence: None)
  Receive Date: 20110712
  Receipt Date: 20110520
  Transmission Date: 20111222
  Serious: No
  Sender: FDA-Public Use
  Company Number: A0928351A

PATIENT
  Age: 83 Year
  Sex: Male

DRUGS (4)
  1. GABAPENTIN [Concomitant]
  2. IBUPROFEN [Concomitant]
  3. JALYN [Suspect]
     Indication: BENIGN PROSTATIC HYPERPLASIA
     Route: 048
     Dates: start: 20110408, end: 20110422
  4. SINEMET [Concomitant]

REACTIONS (3)
  - CONDITION AGGRAVATED [None]
  - DIZZINESS [None]
  - TREMOR [None]
